FAERS Safety Report 12746099 (Version 1)
Quarter: 2016Q3

REPORT INFORMATION
  Report Type: Spontaneous
  Country: US (occurrence: US)
  Receive Date: 20160915
  Receipt Date: 20160915
  Transmission Date: 20161109
  Serious: No
  Sender: FDA-Public Use
  Company Number: US-TAKEDA-2016MPI007992

PATIENT
  Sex: Male
  Weight: 108.39 kg

DRUGS (1)
  1. NINLARO [Suspect]
     Active Substance: IXAZOMIB
     Indication: PLASMA CELL MYELOMA
     Dosage: 4 MG, 1/WEEK
     Route: 048
     Dates: start: 20160810

REACTIONS (4)
  - Constipation [Unknown]
  - Nausea [Unknown]
  - Rhinorrhoea [Unknown]
  - Hypersensitivity [Unknown]
